APPROVED DRUG PRODUCT: AEROSEB-HC
Active Ingredient: HYDROCORTISONE
Strength: 0.5%
Dosage Form/Route: AEROSOL;TOPICAL
Application: A085805 | Product #001
Applicant: ALLERGAN HERBERT DIV ALLERGAN INC
Approved: Approved Prior to Jan 1, 1982 | RLD: No | RS: No | Type: DISCN